FAERS Safety Report 5051200-1 (Version None)
Quarter: 2006Q3

REPORT INFORMATION
  Report Type: 
  Country: None (occurrence: None)
  Receive Date: 20060714
  Receipt Date: 20060428
  Transmission Date: 20061208
  Serious: Yes (Hospitalization, Other)
  Sender: FDA-Public Use
  Company Number: PHHO2006US07039

PATIENT
  Age: 74 Year
  Sex: Male
  Weight: 103 kg

DRUGS (15)
  1. REVLIMID [Concomitant]
  2. OXYCONTIN [Suspect]
     Indication: PAIN
     Dosage: 15 MG,Q4-6H
     Route: 048
     Dates: start: 20060602
  3. EPOGEN [Concomitant]
  4. PREDNISOLONE [Suspect]
  5. EXJADE [Suspect]
     Indication: BLOOD IRON INCREASED
     Dosage: 2000 MG DAILY
     Route: 048
     Dates: start: 20051207, end: 20060423
  6. ZOCOR [Concomitant]
  7. ATENOLOL [Concomitant]
  8. MULTIVITAMIN [Concomitant]
  9. CORAL CALCIUM [Concomitant]
  10. PAROXETINE HYDROCHLORIDE [Concomitant]
  11. FISH OIL [Concomitant]
  12. COMBIVENT [Concomitant]
  13. ADVAIR DISKUS 100/50 [Concomitant]
  14. AZITHROMYCIN [Concomitant]
  15. PANTOPRAZOLE SODIUM [Concomitant]

REACTIONS (25)
  - ABDOMINAL PAIN UPPER [None]
  - ANAEMIA [None]
  - ASTHENIA [None]
  - BLOOD CREATININE INCREASED [None]
  - BRADYCARDIA [None]
  - BURSITIS [None]
  - DISEASE PROGRESSION [None]
  - DYSPNOEA AT REST [None]
  - DYSPNOEA EXERTIONAL [None]
  - HYPOTENSION [None]
  - LOBAR PNEUMONIA [None]
  - LUNG INFILTRATION [None]
  - MALAISE [None]
  - MUSCLE ATROPHY [None]
  - MUSCULOSKELETAL PAIN [None]
  - NAUSEA [None]
  - ORAL INTAKE REDUCED [None]
  - ORTHOSTATIC HYPOTENSION [None]
  - PRODUCTIVE COUGH [None]
  - RENAL FAILURE [None]
  - RENAL IMPAIRMENT [None]
  - SPUTUM DISCOLOURED [None]
  - TENDONITIS [None]
  - WHEEZING [None]
  - WHITE BLOOD CELL COUNT INCREASED [None]
